FAERS Safety Report 6417737-5 (Version None)
Quarter: 2009Q4

REPORT INFORMATION
  Report Type: 
  Country: None (occurrence: None)
  Receive Date: 20091027
  Receipt Date: 20091027
  Transmission Date: 20100525
  Serious: Yes (Other)
  Sender: FDA-Public Use
  Company Number: None

PATIENT
  Age: 50 Year
  Sex: Male
  Weight: 27.2158 kg

DRUGS (1)
  1. HEPARIN [Suspect]
     Indication: PULMONARY OEDEMA
     Dosage: TITRATED TO THERP. APTT

REACTIONS (5)
  - DECREASED APPETITE [None]
  - GASTRIC ULCER [None]
  - HAEMORRHAGE [None]
  - NAUSEA [None]
  - VOMITING [None]
